FAERS Safety Report 9375138 (Version 2)
Quarter: 2013Q3

REPORT INFORMATION
  Report Type: Spontaneous
  Country: US (occurrence: US)
  Receive Date: 20130628
  Receipt Date: 20130729
  Transmission Date: 20140515
  Serious: No
  Sender: FDA-Public Use
  Company Number: US-009507513-1306USA013561

PATIENT
  Age: 64 Year
  Sex: Male
  Weight: 70.3 kg

DRUGS (3)
  1. MIRALAX [Suspect]
     Indication: COLONOSCOPY
     Dosage: 238 G, ONCE
     Route: 048
     Dates: start: 20130616, end: 20130617
  2. MIRALAX [Suspect]
     Indication: BOWEL PREPARATION
  3. MIRALAX [Suspect]
     Indication: MEDICAL OBSERVATION

REACTIONS (2)
  - Overdose [Unknown]
  - Off label use [Unknown]
